FAERS Safety Report 26140304 (Version 1)
Quarter: 2025Q4

REPORT INFORMATION
  Report Type: Spontaneous
  Country: JP (occurrence: JP)
  Receive Date: 20251210
  Receipt Date: 20251210
  Transmission Date: 20260118
  Serious: Yes (Other)
  Sender: EISAI
  Company Number: JP-Eisai-202511620_LEN_P_1

PATIENT
  Age: 75 Year
  Sex: Female

DRUGS (2)
  1. LENVATINIB [Suspect]
     Active Substance: LENVATINIB
     Indication: Anaplastic thyroid cancer
     Dosage: DOSE AND FREQUENCY WERE UNKNOWN
     Route: 048
  2. PEMBROLIZUMAB [Concomitant]
     Active Substance: PEMBROLIZUMAB
     Indication: Anaplastic thyroid cancer
     Dosage: DOSE AND FREQUENCY WERE UNKNOWN
     Route: 041

REACTIONS (5)
  - Adrenal insufficiency [Unknown]
  - Off label use [Unknown]
  - Oedema [Unknown]
  - Thyroiditis [Unknown]
  - Hypothyroidism [Unknown]
